FAERS Safety Report 14107612 (Version 1)
Quarter: 2017Q4

REPORT INFORMATION
  Report Type: Spontaneous
  Country: JP (occurrence: JP)
  Receive Date: 20171019
  Receipt Date: 20171019
  Transmission Date: 20180321
  Serious: Yes (Death, Other)
  Sender: FDA-Public Use
  Company Number: JP-ELI_LILLY_AND_COMPANY-JP201710006101

PATIENT

DRUGS (2)
  1. HUMULIN R [Suspect]
     Active Substance: INSULIN HUMAN
     Indication: HYPERKALAEMIA
     Dosage: 1000 IU, UNK
     Route: 042
  2. SOLDEM 1 [Concomitant]
     Active Substance: DEXTROSE\SODIUM CHLORIDE\SODIUM LACTATE
     Route: 041

REACTIONS (7)
  - Ischaemic hepatitis [Unknown]
  - Renal failure [Unknown]
  - Gastrointestinal haemorrhage [Unknown]
  - Pulmonary haemorrhage [Fatal]
  - Disseminated intravascular coagulation [Unknown]
  - Incorrect dose administered [Unknown]
  - Hypoglycaemia [Unknown]
